FAERS Safety Report 18025615 (Version 2)
Quarter: 2020Q3

REPORT INFORMATION
  Report Type: Spontaneous
  Country: DE (occurrence: DE)
  Receive Date: 20200715
  Receipt Date: 20200825
  Transmission Date: 20201103
  Serious: Yes (Hospitalization, Other)
  Sender: FDA-Public Use
  Company Number: DE-BAYER-2020-137094

PATIENT
  Age: 34 Year
  Sex: Male
  Weight: 63 kg

DRUGS (2)
  1. DOXYCYCLINE. [Concomitant]
     Active Substance: DOXYCYCLINE
     Indication: PNEUMONIA LEGIONELLA
     Dosage: POSSIBLY 2X1 TBL
     Route: 048
     Dates: start: 20200531, end: 20200610
  2. BILTRICIDE [Suspect]
     Active Substance: PRAZIQUANTEL
     Indication: SCHISTOSOMIASIS
     Dosage: PRAZIQUANTEL 1 TAG 5 TABL
     Route: 048
     Dates: start: 202006

REACTIONS (5)
  - Drug-induced liver injury [Recovering/Resolving]
  - Ocular icterus [Recovered/Resolved]
  - Blood bilirubin increased [Unknown]
  - Chromaturia [Recovered/Resolved]
  - Faeces discoloured [Recovered/Resolved]

NARRATIVE: CASE EVENT DATE: 202006
